FAERS Safety Report 5933580-5 (Version None)
Quarter: 2008Q4

REPORT INFORMATION
  Report Type: 
  Country: None (occurrence: None)
  Receive Date: 20081029
  Receipt Date: 20081017
  Transmission Date: 20090506
  Serious: Yes (Hospitalization)
  Sender: FDA-Public Use
  Company Number: US-JNJFOC-20081004643

PATIENT
  Sex: Female
  Weight: 72.58 kg

DRUGS (9)
  1. DURAGESIC-100 [Suspect]
     Route: 062
  2. DURAGESIC-100 [Suspect]
     Indication: BACK PAIN
     Route: 062
  3. LORCET-HD [Concomitant]
     Indication: BREAKTHROUGH PAIN
     Dosage: 10 TO 650 MG IN EVERY 4-6 HOUR
     Route: 048
  4. GLUCOPHAGE [Concomitant]
     Indication: DIABETES MELLITUS
     Route: 048
  5. GLUCOTROL XL [Concomitant]
     Indication: DIABETES MELLITUS
     Route: 048
  6. LASIX [Concomitant]
     Indication: SWELLING
     Route: 048
  7. SKELAXIN [Concomitant]
     Indication: MUSCLE RELAXANT THERAPY
     Route: 048
  8. LEVOTHYROXINE SODIUM [Concomitant]
     Indication: THYROID DISORDER
     Route: 048
  9. RESTORIL [Concomitant]
     Indication: SLEEP DISORDER
     Route: 048

REACTIONS (9)
  - APPENDICITIS [None]
  - APPLICATION SITE IRRITATION [None]
  - APPLICATION SITE PRURITUS [None]
  - ARTHRALGIA [None]
  - INAPPROPRIATE SCHEDULE OF DRUG ADMINISTRATION [None]
  - INTESTINAL PROLAPSE [None]
  - MYOCARDIAL INFARCTION [None]
  - SEPSIS [None]
  - ULCER HAEMORRHAGE [None]
